FAERS Safety Report 23156125 (Version 2)
Quarter: 2023Q4

REPORT INFORMATION
  Report Type: Spontaneous
  Country: GB (occurrence: GB)
  Receive Date: 20231107
  Receipt Date: 20231129
  Transmission Date: 20240110
  Serious: Yes (Other)
  Sender: FDA-Public Use
  Company Number: GB-TAKEDA-2023TUS097801

PATIENT
  Age: 34 Year
  Sex: Male

DRUGS (1)
  1. LISDEXAMFETAMINE DIMESYLATE [Suspect]
     Active Substance: LISDEXAMFETAMINE DIMESYLATE
     Indication: Product used for unknown indication
     Dosage: 50 MILLIGRAM
     Route: 065

REACTIONS (7)
  - Suicidal ideation [Unknown]
  - Stress [Unknown]
  - Anxiety [Unknown]
  - Impaired quality of life [Unknown]
  - Product availability issue [Unknown]
  - Product supply issue [Unknown]
  - Depression [Unknown]
